FAERS Safety Report 14635865 (Version 1)
Quarter: 2018Q1

REPORT INFORMATION
  Report Type: Spontaneous
  Country: JP (occurrence: JP)
  Receive Date: 20180314
  Receipt Date: 20180314
  Transmission Date: 20180509
  Serious: Yes (Other)
  Sender: FDA-Public Use
  Company Number: JP-PFIZER INC-2018098780

PATIENT

DRUGS (2)
  1. RHEUMATREX [Suspect]
     Active Substance: METHOTREXATE SODIUM
     Dosage: 4 MG, WEEKLY
     Route: 048
  2. PREDONINE [Concomitant]
     Active Substance: PREDNISOLONE
     Dosage: UNK

REACTIONS (6)
  - Nasopharyngitis [Unknown]
  - Rheumatoid factor increased [Unknown]
  - Cataract [Unknown]
  - Arthralgia [Unknown]
  - Diplopia [Unknown]
  - C-reactive protein increased [Unknown]

NARRATIVE: CASE EVENT DATE: 201802
